FAERS Safety Report 8796291 (Version 1)
Quarter: 2012Q4

REPORT INFORMATION
  Report Type: 
  Country: US (occurrence: US)
  Receive Date: 20120919
  Receipt Date: 20120919
  Transmission Date: 20130627
  Serious: Yes (Other)
  Sender: FDA-Public Use
  Company Number: US-PFIZER INC-2012230383

PATIENT
  Age: 57 Year
  Sex: Female
  Weight: 99.77 kg

DRUGS (7)
  1. PRISTIQ [Suspect]
     Indication: BIPOLAR DISORDER
     Dosage: 100 mg, 1x/day
     Route: 048
     Dates: end: 201208
  2. XANAX [Concomitant]
     Indication: ANXIETY
     Dosage: UNK
  3. ALPRAZOLAM [Concomitant]
     Indication: ANXIETY
     Dosage: 2 mg, UNK
  4. METHADONE [Concomitant]
     Indication: PAIN
     Dosage: 20 mg (two of 10mg) every 8 hours
  5. OMEPRAZOLE [Concomitant]
     Dosage: 20 mg, 1x/day
  6. LEVOTHYROXINE [Concomitant]
     Dosage: UNK, 1x/day
  7. LISINOPRIL [Concomitant]
     Dosage: 40 mg, 1x/day

REACTIONS (3)
  - Depression [Not Recovered/Not Resolved]
  - Body height decreased [Unknown]
  - Off label use [Unknown]
